FAERS Safety Report 23790654 (Version 2)
Quarter: 2024Q2

REPORT INFORMATION
  Report Type: Spontaneous
  Country: NL (occurrence: NL)
  Receive Date: 20240427
  Receipt Date: 20240509
  Transmission Date: 20240716
  Serious: Yes (Life-Threatening, Hospitalization, Other)
  Sender: FDA-Public Use
  Company Number: None

PATIENT
  Age: 59 Year
  Sex: Female
  Weight: 81 kg

DRUGS (5)
  1. ATORVASTATIN [Suspect]
     Active Substance: ATORVASTATIN
     Indication: Hypercholesterolaemia
     Dosage: 1 PIECE ONCE A DAY, / BRAND NAME NOT SPECIFIED
     Route: 065
     Dates: start: 20231030, end: 20240108
  2. TACAL D3 [Concomitant]
     Indication: Product used for unknown indication
     Dosage: CALCIUM CARB/COLECALC CHEWABLE TB 1.25G/800IU (500MG CA) /  CHEWABLE TABLET 500MG/800IU ORANGE??C...
     Route: 065
  3. BECLOMETHASONE\FORMOTEROL [Concomitant]
     Active Substance: BECLOMETHASONE\FORMOTEROL
     Indication: Product used for unknown indication
     Dosage: AEROSOL, 100/6 ?G/DOSE (MICROGRAMS PER DOSE),ROA: AEROSOL 100/6UG/DO / BRAND NAME NOT SPECIFIED
     Route: 065
  4. NEXIUM [Concomitant]
     Active Substance: ESOMEPRAZOLE MAGNESIUM
     Indication: Product used for unknown indication
     Dosage: ESOMEPRAZOLE?GASTRO-RESISTANT TABLET, 20 MG (MILLIGRAM)
     Route: 065
  5. NITROFURANTOIN [Concomitant]
     Active Substance: NITROFURANTOIN
     Indication: Product used for unknown indication
     Dosage: NITROFURANTOIN CAPSULE MGA 100MG / FURABID CAPSULE MGA 100MG
     Route: 065

REACTIONS (5)
  - Necrotising myositis [Recovering/Resolving]
  - Rhabdomyolysis [Recovering/Resolving]
  - Labelled drug-food interaction issue [Recovering/Resolving]
  - Polymyositis [Recovering/Resolving]
  - Hepatitis [Recovering/Resolving]
